FAERS Safety Report 4948156-6 (Version None)
Quarter: 2006Q1

REPORT INFORMATION
  Report Type: 
  Country: None (occurrence: None)
  Receive Date: 20060320
  Receipt Date: 20060309
  Transmission Date: 20060701
  Serious: Yes (Death, Life-Threatening)
  Sender: FDA-Public Use
  Company Number: JP-BRISTOL-MYERS SQUIBB COMPANY-13317458

PATIENT
  Age: 58 Year
  Sex: Male

DRUGS (3)
  1. ENDOXAN [Suspect]
     Indication: STEM CELL TRANSPLANT
     Dates: start: 20010101, end: 20010101
  2. ETOPOSIDE [Concomitant]
  3. CARBOPLATIN [Concomitant]

REACTIONS (2)
  - CARDIOGENIC SHOCK [None]
  - MYOCARDIAL HAEMORRHAGE [None]
